FAERS Safety Report 15570951 (Version 2)
Quarter: 2018Q4

REPORT INFORMATION
  Report Type: Spontaneous
  Country: FR (occurrence: FR)
  Receive Date: 20181031
  Receipt Date: 20181114
  Transmission Date: 20190205
  Serious: Yes (Other)
  Sender: FDA-Public Use
  Company Number: FR-IPSEN BIOPHARMACEUTICALS, INC.-2018-16374

PATIENT
  Age: 40 Year
  Sex: Female

DRUGS (6)
  1. SPAGULAX [Concomitant]
     Active Substance: PLANTAGO OVATA SEED
  2. DANTRIUM 25 MG, G?LULE [Concomitant]
     Route: 048
  3. DYSPORT [Suspect]
     Active Substance: ABOBOTULINUMTOXINA
     Indication: PARAPARESIS
     Route: 030
     Dates: start: 20180718, end: 20180718
  4. OKIMUS [Concomitant]
     Active Substance: HAWTHORN LEAF WITH FLOWER\QUININE
     Route: 048
  5. BACLOFENE [Concomitant]
     Active Substance: BACLOFEN
     Route: 048
  6. LEXOMIL 12 MG, COMPRIM? [Concomitant]
     Active Substance: BROMAZEPAM

REACTIONS (5)
  - Dyspnoea [Recovered/Resolved]
  - Dysphagia [Recovered/Resolved]
  - Muscular weakness [Recovering/Resolving]
  - Dysphonia [Recovered/Resolved]
  - Visual impairment [Recovered/Resolved]

NARRATIVE: CASE EVENT DATE: 20180721
